FAERS Safety Report 20724086 (Version 1)
Quarter: 2022Q2

REPORT INFORMATION
  Report Type: Spontaneous
  Country: FI (occurrence: None)
  Receive Date: 20220419
  Receipt Date: 20220419
  Transmission Date: 20220721
  Serious: Yes (Death, Hospitalization, Other)
  Sender: FDA-Public Use
  Company Number: FI-ALVOGEN-2022-ALVOGEN-119661

PATIENT
  Sex: Male

DRUGS (5)
  1. BUPRENORPHINE [Suspect]
     Active Substance: BUPRENORPHINE
     Indication: Product used for unknown indication
     Route: 042
  2. AMPHETAMINE [Suspect]
     Active Substance: AMPHETAMINE
     Indication: Product used for unknown indication
  3. BENZODIAZEPINE [Suspect]
     Active Substance: BENZODIAZEPINE
     Indication: Product used for unknown indication
  4. CANNABIS SATIVA FLOWERING TOP [Suspect]
     Active Substance: CANNABIS SATIVA FLOWERING TOP
     Indication: Product used for unknown indication
  5. CLONAZEPAM [Suspect]
     Active Substance: CLONAZEPAM
     Indication: Product used for unknown indication

REACTIONS (4)
  - Rhabdomyolysis [Fatal]
  - Quadriparesis [Fatal]
  - Substance abuse [Fatal]
  - Myelopathy [Fatal]
